FAERS Safety Report 20980551 (Version 2)
Quarter: 2022Q3

REPORT INFORMATION
  Report Type: Spontaneous
  Country: ES (occurrence: ES)
  Receive Date: 20220620
  Receipt Date: 20220712
  Transmission Date: 20221027
  Serious: Yes (Other)
  Sender: FDA-Public Use
  Company Number: ES-SAMSUNG BIOEPIS-SB-2022-14342

PATIENT
  Age: 30 Year
  Sex: Female

DRUGS (1)
  1. IMRALDI [Suspect]
     Active Substance: ADALIMUMAB
     Indication: Crohn^s disease
     Dosage: UNKNOWN
     Route: 065

REACTIONS (7)
  - Crohn^s disease [Not Recovered/Not Resolved]
  - Depression [Unknown]
  - Alopecia [Unknown]
  - Ill-defined disorder [Unknown]
  - Suicidal ideation [Unknown]
  - Hyperhidrosis [Not Recovered/Not Resolved]
  - Asthenia [Unknown]
